FAERS Safety Report 17099688 (Version 1)
Quarter: 2019Q4

REPORT INFORMATION
  Report Type: Spontaneous
  Country: GR (occurrence: GR)
  Receive Date: 20191202
  Receipt Date: 20191202
  Transmission Date: 20200122
  Serious: Yes (Hospitalization)
  Sender: FDA-Public Use
  Company Number: GR-PRINSTON PHARMACEUTICAL INC.-2019PRN00930

PATIENT
  Age: 56 Year
  Sex: Female

DRUGS (4)
  1. DULOXETINE. [Suspect]
     Active Substance: DULOXETINE
     Dosage: 90 MG, 1X/DAY
     Route: 065
  2. NEBIVOLOL. [Concomitant]
     Active Substance: NEBIVOLOL
     Indication: HYPERTENSION
     Dosage: UNK
     Route: 065
  3. DULOXETINE. [Suspect]
     Active Substance: DULOXETINE
     Dosage: 60 MG, 1X/DAY
     Route: 065
  4. DULOXETINE. [Suspect]
     Active Substance: DULOXETINE
     Dosage: 60 MG, 1X/DAY
     Route: 065

REACTIONS (1)
  - Spasmodic dysphonia [Recovered/Resolved]
